FAERS Safety Report 5601452-1 (Version None)
Quarter: 2007Q4

REPORT INFORMATION
  Report Type: 
  Country: None (occurrence: None)
  Receive Date: 20071231
  Receipt Date: 20070629
  Transmission Date: 20080405
  Serious: Yes (Other)
  Sender: FDA-Public Use
  Company Number: 158359USA

PATIENT
  Sex: Male

DRUGS (2)
  1. CLOZAPINE [Suspect]
     Indication: SCHIZOPHRENIA
     Dosage: (700 MG),ORAL
     Route: 048
  2. QUETIAPINE FUMARATE [Concomitant]

REACTIONS (1)
  - CONVULSION [None]
